FAERS Safety Report 23683205 (Version 1)
Quarter: 2024Q1

REPORT INFORMATION
  Report Type: Spontaneous
  Country: US (occurrence: US)
  Receive Date: 20240328
  Receipt Date: 20240328
  Transmission Date: 20240410
  Serious: Yes (Death, Hospitalization, Other)
  Sender: FDA-Public Use
  Company Number: US-STRIDES ARCOLAB LIMITED-2024SP003509

PATIENT
  Age: 65 Year
  Sex: Male

DRUGS (8)
  1. DOXORUBICIN [Suspect]
     Active Substance: DOXORUBICIN
     Indication: Malignant mediastinal neoplasm
     Dosage: 150 MG/M2, NEOADJUVANT CHEMOTHERAPY (TOTAL CUMULATIVE DOSE OF 150?MG/M2)
     Route: 065
  2. DOXORUBICIN [Suspect]
     Active Substance: DOXORUBICIN
     Indication: Sarcoma
  3. PREDNISOLONE [Suspect]
     Active Substance: PREDNISOLONE
     Indication: Radiation pericarditis
     Dosage: UNK
     Route: 048
     Dates: start: 20220627, end: 20220630
  4. COLCHICINE [Suspect]
     Active Substance: COLCHICINE
     Indication: Radiation pericarditis
     Dosage: UNK
     Route: 065
     Dates: start: 20220626
  5. IBUPROFEN [Suspect]
     Active Substance: IBUPROFEN
     Indication: Radiation pericarditis
     Dosage: UNK
     Route: 065
     Dates: start: 20220626, end: 20220627
  6. IFOSFAMIDE [Suspect]
     Active Substance: IFOSFAMIDE
     Indication: Malignant mediastinal neoplasm
     Dosage: UNK, NEOADJUVANT CHEMOTHERAPY
     Route: 065
  7. IFOSFAMIDE [Suspect]
     Active Substance: IFOSFAMIDE
     Indication: Sarcoma
  8. AMIODARONE [Concomitant]
     Active Substance: AMIODARONE
     Indication: Atrial fibrillation
     Dosage: UNK
     Route: 042
     Dates: start: 20220627

REACTIONS (8)
  - Drug ineffective [Fatal]
  - Bacterial pericarditis [Fatal]
  - Klebsiella infection [Unknown]
  - Escherichia infection [Unknown]
  - Pseudomonas infection [Unknown]
  - Candida infection [Unknown]
  - Disease recurrence [Unknown]
  - Off label use [Unknown]

NARRATIVE: CASE EVENT DATE: 20220101
